FAERS Safety Report 9660521 (Version 1)
Quarter: 2013Q4

REPORT INFORMATION
  Report Type: Spontaneous
  Country: TN (occurrence: TN)
  Receive Date: 20131031
  Receipt Date: 20131031
  Transmission Date: 20140711
  Serious: Yes (Death, Life-Threatening)
  Sender: FDA-Public Use
  Company Number: TN-ROXANE LABORATORIES, INC.-2013-RO-01739RO

PATIENT
  Age: 32 Year
  Sex: Female

DRUGS (1)
  1. METHOTREXATE [Suspect]
     Indication: ECTOPIC PREGNANCY TERMINATION
     Dosage: 75 MG

REACTIONS (4)
  - Toxicity to various agents [Fatal]
  - Septic shock [Fatal]
  - Renal failure [Unknown]
  - Hepatocellular injury [Unknown]
